FAERS Safety Report 9719569 (Version 1)
Quarter: 2013Q4

REPORT INFORMATION
  Report Type: Spontaneous
  Country: US (occurrence: US)
  Receive Date: 20131128
  Receipt Date: 20131128
  Transmission Date: 20140711
  Serious: No
  Sender: FDA-Public Use
  Company Number: US-BIOGENIDEC-2013BI115318

PATIENT
  Age: 29 Year
  Sex: Male
  Weight: 121 kg

DRUGS (8)
  1. TYSABRI [Suspect]
     Indication: MULTIPLE SCLEROSIS
     Route: 042
     Dates: start: 20110512, end: 20130411
  2. TYSABRI [Suspect]
     Indication: MULTIPLE SCLEROSIS
     Route: 042
     Dates: start: 201104, end: 201306
  3. VITAMIN D3 [Concomitant]
     Route: 048
  4. VICODIN [Concomitant]
     Route: 048
  5. PRILOSEC [Concomitant]
     Route: 048
  6. PROPANOLOL [Concomitant]
     Route: 048
  7. TRAMADOL [Concomitant]
     Route: 048
  8. TRAZODONE [Concomitant]
     Route: 048

REACTIONS (15)
  - Depression [Unknown]
  - Anxiety [Unknown]
  - Anger [Unknown]
  - Sleep apnoea syndrome [Unknown]
  - Dysuria [Unknown]
  - Ataxia [Unknown]
  - Diarrhoea [Unknown]
  - Automatic bladder [Unknown]
  - Clumsiness [Unknown]
  - Multiple sclerosis [Unknown]
  - Constipation [Unknown]
  - Headache [Unknown]
  - Nausea [Unknown]
  - Dizziness [Unknown]
  - Fatigue [Unknown]
